FAERS Safety Report 19053164 (Version 1)
Quarter: 2021Q1

REPORT INFORMATION
  Report Type: Spontaneous
  Country: DE (occurrence: DE)
  Receive Date: 20210324
  Receipt Date: 20210324
  Transmission Date: 20210420
  Serious: Yes (Other)
  Sender: FDA-Public Use
  Company Number: DE-ASTRAZENECA-2021A162578

PATIENT
  Age: 57 Year
  Sex: Male

DRUGS (3)
  1. RIVAROXABAN [Concomitant]
     Active Substance: RIVAROXABAN
     Dates: start: 20190603
  2. FONDAPARINUX [Concomitant]
     Active Substance: FONDAPARINUX
     Dates: start: 2019
  3. OSIMERTINIB. [Suspect]
     Active Substance: OSIMERTINIB
     Indication: ADENOCARCINOMA
     Dosage: 80.0MG UNKNOWN
     Route: 048
     Dates: start: 201909

REACTIONS (1)
  - Malignant neoplasm progression [Unknown]

NARRATIVE: CASE EVENT DATE: 202101
